FAERS Safety Report 7451975-8 (Version None)
Quarter: 2011Q2

REPORT INFORMATION
  Report Type: 
  Country: None (occurrence: None)
  Receive Date: 20110502
  Receipt Date: 20110425
  Transmission Date: 20111010
  Serious: Yes (Hospitalization)
  Sender: FDA-Public Use
  Company Number: US-GILEAD-2011-0034842

PATIENT
  Sex: Female

DRUGS (1)
  1. LETAIRIS [Suspect]
     Indication: PULMONARY ARTERIAL HYPERTENSION
     Route: 048
     Dates: start: 20090804

REACTIONS (7)
  - HEPATIC FAILURE [None]
  - TREATMENT NONCOMPLIANCE [None]
  - FATIGUE [None]
  - HEPATIC STEATOSIS [None]
  - URINARY TRACT INFECTION [None]
  - COORDINATION ABNORMAL [None]
  - HEPATIC ENCEPHALOPATHY [None]
